FAERS Safety Report 14074595 (Version 1)
Quarter: 2017Q4

REPORT INFORMATION
  Report Type: Report from Study
  Country: CA (occurrence: CA)
  Receive Date: 20171010
  Receipt Date: 20171010
  Transmission Date: 20180321
  Serious: Yes (Life-Threatening, Other)
  Sender: FDA-Public Use
  Company Number: PHHY2017CA142066

PATIENT
  Sex: Female

DRUGS (2)
  1. MEKINIST [Suspect]
     Active Substance: TRAMETINIB DIMETHYL SULFOXIDE
     Indication: METASTATIC MALIGNANT MELANOMA
     Dosage: 2 MG, UNK
     Route: 048
     Dates: start: 20170923
  2. TAFINLAR [Suspect]
     Active Substance: DABRAFENIB MESYLATE
     Indication: METASTATIC MALIGNANT MELANOMA
     Dosage: 300 MG, UNK
     Route: 048
     Dates: start: 20170923

REACTIONS (11)
  - Feeling abnormal [Unknown]
  - Chest pain [Unknown]
  - Metastases to spleen [Unknown]
  - Dyskinesia [Unknown]
  - General physical health deterioration [Unknown]
  - Chills [Unknown]
  - Nausea [Unknown]
  - Aphasia [Unknown]
  - Chest discomfort [Unknown]
  - Headache [Unknown]
  - Thinking abnormal [Unknown]
